FAERS Safety Report 7049067-5 (Version None)
Quarter: 2010Q4

REPORT INFORMATION
  Report Type: 
  Country: None (occurrence: None)
  Receive Date: 20101012
  Receipt Date: 20100930
  Transmission Date: 20110411
  Serious: Yes (Hospitalization)
  Sender: FDA-Public Use
  Company Number: 2010MA003162

PATIENT
  Sex: Female

DRUGS (7)
  1. SULFATRIM [Suspect]
  2. CYCLOSPORINE [Suspect]
  3. CORTICOSTEROIDS (CORTICOSTEROIDS) [Suspect]
  4. NYSTATIN [Concomitant]
  5. VALACICLOVIR [Concomitant]
  6. CYCLOSPORINE [Concomitant]
  7. CORTICOSTEROIDS [Concomitant]

REACTIONS (9)
  - ADENOVIRAL HAEMORRHAGIC CYSTITIS [None]
  - ARTERIAL STENOSIS [None]
  - CANDIDIASIS [None]
  - CANDIDURIA [None]
  - ENGRAFT FAILURE [None]
  - HERPES ZOSTER [None]
  - HYDRONEPHROSIS [None]
  - NO THERAPEUTIC RESPONSE [None]
  - VASCULAR GRAFT COMPLICATION [None]
